FAERS Safety Report 20964702 (Version 1)
Quarter: 2022Q2

REPORT INFORMATION
  Report Type: Report from Study
  Country: CA (occurrence: CA)
  Receive Date: 20220615
  Receipt Date: 20220615
  Transmission Date: 20220721
  Serious: Yes (Other)
  Sender: FDA-Public Use
  Company Number: CA-ABBVIE-21K-028-3973985-00

PATIENT
  Sex: Female

DRUGS (6)
  1. RINVOQ [Suspect]
     Active Substance: UPADACITINIB
     Indication: Rheumatoid arthritis
     Route: 048
     Dates: start: 20210612
  2. RINVOQ [Suspect]
     Active Substance: UPADACITINIB
     Route: 048
  3. RINVOQ [Suspect]
     Active Substance: UPADACITINIB
     Route: 048
  4. ARTHROTEC [Concomitant]
     Active Substance: DICLOFENAC SODIUM\MISOPROSTOL
     Indication: Product used for unknown indication
  5. ALENDRONATE [Concomitant]
     Active Substance: ALENDRONATE SODIUM
     Indication: Bone disorder
  6. TRAMADOL [Concomitant]
     Active Substance: TRAMADOL
     Indication: Product used for unknown indication

REACTIONS (14)
  - Surgery [Unknown]
  - Spinal fusion surgery [Unknown]
  - Pollakiuria [Unknown]
  - Middle insomnia [Unknown]
  - Pain [Recovering/Resolving]
  - Contusion [Unknown]
  - Productive cough [Unknown]
  - Musculoskeletal disorder [Not Recovered/Not Resolved]
  - Increased tendency to bruise [Unknown]
  - Joint noise [Unknown]
  - Pain in extremity [Unknown]
  - Mobility decreased [Unknown]
  - Therapeutic product effect incomplete [Not Recovered/Not Resolved]
  - Cough [Unknown]

NARRATIVE: CASE EVENT DATE: 20210101
